FAERS Safety Report 8070388-1 (Version None)
Quarter: 2012Q1

REPORT INFORMATION
  Report Type: 
  Country: None (occurrence: None)
  Receive Date: 20120125
  Receipt Date: 20120117
  Transmission Date: 20120608
  Serious: Yes (Hospitalization)
  Sender: FDA-Public Use
  Company Number: US-ROCHE-1032013

PATIENT
  Sex: Male

DRUGS (5)
  1. LEUCOVORIN CALCIUM [Suspect]
     Indication: COLON CANCER
     Route: 042
     Dates: start: 20070523
  2. OXALIPLATIN [Suspect]
     Indication: COLON CANCER
     Route: 042
     Dates: start: 20070523
  3. AVASTIN [Suspect]
     Indication: COLON CANCER
     Route: 042
     Dates: start: 20070523
  4. FLUOROURACIL [Suspect]
     Indication: COLON CANCER
     Route: 040
     Dates: start: 20070523
  5. FLUOROURACIL [Suspect]
     Dosage: 2.4 GM/M2

REACTIONS (1)
  - HAEMORRHOIDS [None]
